FAERS Safety Report 15894596 (Version 1)
Quarter: 2019Q1

REPORT INFORMATION
  Report Type: Spontaneous
  Country: AU (occurrence: AU)
  Receive Date: 20190131
  Receipt Date: 20190131
  Transmission Date: 20190417
  Serious: Yes (Other)
  Sender: FDA-Public Use
  Company Number: AU-SAKK-2019SA021303AA

PATIENT

DRUGS (1)
  1. FEXOFENADINE [Suspect]
     Active Substance: FEXOFENADINE\FEXOFENADINE HYDROCHLORIDE
     Dosage: UNK UNK, UNK
     Route: 065

REACTIONS (6)
  - Rhinorrhoea [Unknown]
  - Drug dependence [Unknown]
  - Lacrimation increased [Unknown]
  - Throat irritation [Unknown]
  - Seasonal allergy [Unknown]
  - Sneezing [Unknown]
